FAERS Safety Report 20015588 (Version 1)
Quarter: 2021Q4

REPORT INFORMATION
  Report Type: Spontaneous
  Country: US (occurrence: None)
  Receive Date: 20211029
  Receipt Date: 20211029
  Transmission Date: 20220303
  Serious: Yes (Hospitalization)
  Sender: FDA-Public Use
  Company Number: None

PATIENT
  Age: 40 Year
  Sex: Female

DRUGS (1)
  1. VENOFER [Suspect]
     Active Substance: IRON SUCROSE
     Dosage: OTHER FREQUENCY : OTHER;?
     Route: 042

REACTIONS (4)
  - Polyp [None]
  - Rash macular [None]
  - Dyspnoea [None]
  - Loss of consciousness [None]

NARRATIVE: CASE EVENT DATE: 20210705
